FAERS Safety Report 17041356 (Version 1)
Quarter: 2019Q4

REPORT INFORMATION
  Report Type: Spontaneous
  Country: GB (occurrence: GB)
  Receive Date: 20191118
  Receipt Date: 20191118
  Transmission Date: 20200122
  Serious: Yes (Life-Threatening)
  Sender: FDA-Public Use
  Company Number: GB-TEVA-2019-GB-1137430

PATIENT
  Age: 78 Year
  Sex: Male
  Weight: 85.2 kg

DRUGS (12)
  1. FUROSEMIDE. [Concomitant]
     Active Substance: FUROSEMIDE
     Dosage: 40 MG
  2. ROSUVASTATIN. [Suspect]
     Active Substance: ROSUVASTATIN
     Dosage: 20 MG
     Dates: start: 20140407, end: 20171019
  3. SEVELAMER [Concomitant]
     Active Substance: SEVELAMER
     Dosage: WITH MEALS., 2400 MG
  4. ACETYLSALICYLIC ACID [Concomitant]
     Active Substance: ASPIRIN
     Dosage: 75 MG
  5. LEVEMIR [Concomitant]
     Active Substance: INSULIN DETEMIR
     Dosage: 100 UNITS/ML.
     Route: 058
  6. AMLODIPINE [Concomitant]
     Active Substance: AMLODIPINE BESYLATE
     Dosage: 5 MG
  7. PHENOXYMETHYLPENICILLIN [Concomitant]
     Active Substance: PENICILLIN V
     Dosage: 500 MG
  8. BISACODYL. [Concomitant]
     Active Substance: BISACODYL
     Dosage: NIGHT, 10 MG
  9. GAVISCON ADVANCE [Concomitant]
     Active Substance: POTASSIUM BICARBONATE\SODIUM ALGINATE
     Dosage: 2 DOSAGE FORMS DAILY; TWICE A DAY.
  10. NOVORAPID [Concomitant]
     Active Substance: INSULIN ASPART
     Dosage: 100 UNITS/ML.
     Route: 058
  11. CREON [Concomitant]
     Active Substance: PANCRELIPASE AMYLASE\PANCRELIPASE LIPASE\PANCRELIPASE PROTEASE
     Dosage: 75000 IU
  12. RANITIDINE. [Concomitant]
     Active Substance: RANITIDINE
     Dosage: 300 MG

REACTIONS (1)
  - Drug hypersensitivity [Recovered/Resolved]

NARRATIVE: CASE EVENT DATE: 20171019
